FAERS Safety Report 8494252-9 (Version None)
Quarter: 2012Q2

REPORT INFORMATION
  Report Type: 
  Country: None (occurrence: None)
  Receive Date: 20120628
  Receipt Date: 20120613
  Transmission Date: 20120825
  Serious: Yes (Other)
  Sender: FDA-Public Use
  Company Number: 2012-002279

PATIENT
  Age: 64 Year
  Sex: Female
  Weight: 62.4 kg

DRUGS (3)
  1. ACTONEL [Suspect]
     Indication: OSTEOPENIA
     Dosage: 150 MG ONCE MONTHLY, ORAL
     Route: 048
     Dates: start: 20111001
  2. OS-CAL D (CALCIUM CARBONATE, COLECALCIFEROL) [Concomitant]
  3. VITAMIN D [Concomitant]

REACTIONS (4)
  - FALL [None]
  - PATELLA FRACTURE [None]
  - PAIN [None]
  - TENDON RUPTURE [None]
